FAERS Safety Report 7429889-9 (Version None)
Quarter: 2011Q2

REPORT INFORMATION
  Report Type: 
  Country: None (occurrence: None)
  Receive Date: 20110421
  Receipt Date: 20110413
  Transmission Date: 20111010
  Serious: Yes (Hospitalization)
  Sender: FDA-Public Use
  Company Number: US-ASTRAZENECA-2011SE21451

PATIENT
  Age: 64 Year
  Sex: Female

DRUGS (5)
  1. NUTRICAL [Concomitant]
     Indication: OSTEOPOROSIS
     Route: 048
  2. ALENIA [Concomitant]
     Indication: ASTHMA
     Route: 048
     Dates: start: 20090101
  3. PROTOS [Concomitant]
     Indication: OSTEOPOROSIS
     Route: 048
  4. NEXIUM [Suspect]
     Indication: GASTROOESOPHAGEAL REFLUX DISEASE
     Route: 048
     Dates: start: 20110101
  5. ALENIA [Concomitant]
     Indication: EMPHYSEMA
     Route: 048
     Dates: start: 20090101

REACTIONS (3)
  - EAR INFECTION [None]
  - DIARRHOEA [None]
  - INTERVERTEBRAL DISC SPACE NARROWING [None]
